FAERS Safety Report 13167790 (Version 9)
Quarter: 2019Q1

REPORT INFORMATION
  Report Type: Spontaneous
  Country: US (occurrence: US)
  Receive Date: 20170131
  Receipt Date: 20190320
  Transmission Date: 20190417
  Serious: Yes (Hospitalization)
  Sender: FDA-Public Use
  Company Number: US-PFIZER INC-2017042832

PATIENT
  Age: 51 Year
  Sex: Female
  Weight: 121 kg

DRUGS (5)
  1. LYRICA [Suspect]
     Active Substance: PREGABALIN
     Indication: SCIATICA
     Dosage: 150 MG, 3X/DAY(1 CAPSULE 3 TIMES DAILY)
     Route: 048
     Dates: start: 20181214
  2. LYRICA [Suspect]
     Active Substance: PREGABALIN
     Indication: FIBROMYALGIA
     Dosage: 150 MG, 3X/DAY(1 CAPSULE 3 TIMES DAILY)
     Route: 048
  3. LYRICA [Suspect]
     Active Substance: PREGABALIN
     Indication: ARTHRALGIA
     Dosage: 150 MG, 3X/DAY
     Route: 048
     Dates: start: 20190312
  4. LYRICA [Suspect]
     Active Substance: PREGABALIN
     Indication: SACROILIITIS
  5. LYRICA [Suspect]
     Active Substance: PREGABALIN
     Indication: NEUROPATHY PERIPHERAL

REACTIONS (5)
  - Blood pressure fluctuation [Unknown]
  - Hypotension [Unknown]
  - Product use issue [Unknown]
  - Malaise [Unknown]
  - Feeling abnormal [Unknown]

NARRATIVE: CASE EVENT DATE: 20181214
